FAERS Safety Report 10340205 (Version 1)
Quarter: 2014Q3

REPORT INFORMATION
  Report Type: Spontaneous
  Country: US (occurrence: US)
  Receive Date: 20140724
  Receipt Date: 20140724
  Transmission Date: 20150326
  Serious: Yes (Hospitalization)
  Sender: FDA-Public Use
  Company Number: US-ELI_LILLY_AND_COMPANY-US201407008555

PATIENT
  Age: 66 Year
  Sex: Male

DRUGS (8)
  1. GEMCITABINE HYDROCHLORIDE. [Suspect]
     Active Substance: GEMCITABINE HYDROCHLORIDE
     Indication: SQUAMOUS CELL CARCINOMA OF LUNG
     Dosage: 1000 MG/M2, OTHER
     Route: 065
     Dates: start: 20121212, end: 20130220
  2. CISPLATIN. [Concomitant]
     Active Substance: CISPLATIN
     Indication: LARYNGEAL CANCER STAGE I
  3. TAXOL W/CARBOPLATIN [Concomitant]
     Indication: LARYNGEAL CANCER STAGE I
  4. CISPLATIN. [Concomitant]
     Active Substance: CISPLATIN
     Indication: SQUAMOUS CELL CARCINOMA OF LUNG
     Dosage: 60 MG/M2, OTHER
     Route: 065
     Dates: start: 20121212, end: 20130220
  5. PACLITAXEL. [Concomitant]
     Active Substance: PACLITAXEL
     Indication: SQUAMOUS CELL CARCINOMA OF LUNG
     Route: 065
  6. GEMCITABINE HYDROCHLORIDE. [Suspect]
     Active Substance: GEMCITABINE HYDROCHLORIDE
     Indication: LARYNGEAL CANCER STAGE I
  7. PACLITAXEL. [Concomitant]
     Active Substance: PACLITAXEL
     Indication: LARYNGEAL CANCER STAGE I
  8. TAXOL W/CARBOPLATIN [Concomitant]
     Indication: SQUAMOUS CELL CARCINOMA OF LUNG
     Dosage: UNK, OTHER
     Route: 065

REACTIONS (2)
  - Pneumonia aspiration [Recovered/Resolved]
  - Recall phenomenon [Recovering/Resolving]
